FAERS Safety Report 25221863 (Version 2)
Quarter: 2025Q2

REPORT INFORMATION
  Report Type: Spontaneous
  Country: DE (occurrence: DE)
  Receive Date: 20250421
  Receipt Date: 20250424
  Transmission Date: 20250717
  Serious: No
  Sender: SANOFI AVENTIS
  Company Number: DE-SANOFI-02490485

PATIENT
  Sex: Male

DRUGS (1)
  1. KEVZARA [Suspect]
     Active Substance: SARILUMAB
     Indication: Rheumatoid arthritis
     Dates: start: 2023

REACTIONS (1)
  - No adverse event [Unknown]
